FAERS Safety Report 8282530-8 (Version None)
Quarter: 2012Q2

REPORT INFORMATION
  Report Type: 
  Country: None (occurrence: None)
  Receive Date: 20120411
  Receipt Date: 20120402
  Transmission Date: 20120825
  Serious: Yes (Other)
  Sender: FDA-Public Use
  Company Number: 2011SP058698

PATIENT
  Sex: Female

DRUGS (3)
  1. RIBAVIRIN [Suspect]
     Indication: HEPATITIS C
     Dosage: ;UNK;UNK
     Dates: start: 20111021, end: 20120206
  2. PEG-INTRON [Suspect]
     Indication: HEPATITIS C
     Dosage: ;UNK;UNK
     Dates: start: 20111021, end: 20120206
  3. VICTRELIS [Suspect]
     Indication: HEPATITIS C
     Dosage: ;UNK;UNK
     Dates: start: 20111118, end: 20120206

REACTIONS (23)
  - MEMORY IMPAIRMENT [None]
  - TOOTH EXTRACTION [None]
  - DRUG DOSE OMISSION [None]
  - SINUSITIS [None]
  - IRRITABILITY [None]
  - NODULE [None]
  - JOINT SWELLING [None]
  - ABDOMINAL PAIN [None]
  - ALOPECIA [None]
  - SKIN DISCOLOURATION [None]
  - POLYMENORRHOEA [None]
  - TEETH BRITTLE [None]
  - HEADACHE [None]
  - INFLUENZA LIKE ILLNESS [None]
  - FALL [None]
  - CONTUSION [None]
  - OEDEMA PERIPHERAL [None]
  - DEPRESSION [None]
  - WHITE BLOOD CELL COUNT ABNORMAL [None]
  - DEHYDRATION [None]
  - TOOTH LOSS [None]
  - INSOMNIA [None]
  - PAIN [None]
